FAERS Safety Report 16407119 (Version 1)
Quarter: 2019Q2

REPORT INFORMATION
  Report Type: Spontaneous
  Country: US (occurrence: US)
  Receive Date: 20190608
  Receipt Date: 20190608
  Transmission Date: 20190711
  Serious: Yes (Other)
  Sender: FDA-Public Use
  Company Number: US-AMGEN-USASP2019088065

PATIENT

DRUGS (1)
  1. PROLIA [Suspect]
     Active Substance: DENOSUMAB
     Indication: OSTEOPOROSIS
     Dosage: UNK
     Route: 065

REACTIONS (6)
  - Pelvic fracture [Unknown]
  - Arthralgia [Not Recovered/Not Resolved]
  - Rib fracture [Unknown]
  - Bone pain [Not Recovered/Not Resolved]
  - Spinal compression fracture [Unknown]
  - Drug ineffective [Unknown]
